FAERS Safety Report 23076022 (Version 1)
Quarter: 2023Q4

REPORT INFORMATION
  Report Type: Report from Study
  Country: PL (occurrence: PL)
  Receive Date: 20231017
  Receipt Date: 20231017
  Transmission Date: 20240110
  Serious: Yes (Hospitalization)
  Sender: FDA-Public Use
  Company Number: PL-JNJFOC-20230569144

PATIENT
  Age: 28 Year
  Sex: Male
  Weight: 71 kg

DRUGS (15)
  1. GUSELKUMAB [Suspect]
     Active Substance: GUSELKUMAB
     Indication: Crohn^s disease
     Dosage: LAST TREATMENT DATE 20-APR-2023
     Route: 058
     Dates: start: 20190618
  2. GUSELKUMAB [Suspect]
     Active Substance: GUSELKUMAB
  3. GUSELKUMAB [Suspect]
     Active Substance: GUSELKUMAB
  4. GUSELKUMAB [Suspect]
     Active Substance: GUSELKUMAB
  5. DEVIKAP [Concomitant]
     Indication: Osteoporosis prophylaxis
     Dosage: 4 DROPS
     Route: 048
     Dates: start: 20170917, end: 20230430
  6. IBUPROFEN [Concomitant]
     Active Substance: IBUPROFEN
     Indication: Headache
     Route: 048
     Dates: start: 201803
  7. IBUPROFEN [Concomitant]
     Active Substance: IBUPROFEN
     Route: 048
     Dates: start: 20190427
  8. IBUPROFEN [Concomitant]
     Active Substance: IBUPROFEN
     Route: 048
     Dates: start: 20190506, end: 20190506
  9. IBUPROFEN [Concomitant]
     Active Substance: IBUPROFEN
     Route: 048
     Dates: start: 20190324, end: 20190324
  10. ACETAMINOPHEN [Concomitant]
     Active Substance: ACETAMINOPHEN
     Indication: COVID-19
     Route: 048
     Dates: start: 20210601, end: 20210613
  11. ACETAMINOPHEN [Concomitant]
     Active Substance: ACETAMINOPHEN
     Indication: Headache
     Route: 048
     Dates: start: 20210905, end: 20210906
  12. ACETAMINOPHEN [Concomitant]
     Active Substance: ACETAMINOPHEN
     Indication: Nasopharyngitis
     Route: 048
     Dates: start: 20220321, end: 20220323
  13. ACETAMINOPHEN [Concomitant]
     Active Substance: ACETAMINOPHEN
     Indication: Nephrotic syndrome
     Route: 048
     Dates: start: 20220805, end: 20220808
  14. ACETAMINOPHEN [Concomitant]
     Active Substance: ACETAMINOPHEN
     Route: 048
     Dates: start: 20230509, end: 20230516
  15. PENTASA [Concomitant]
     Active Substance: MESALAMINE
     Indication: Crohn^s disease
     Route: 048
     Dates: start: 20170222, end: 20230421

REACTIONS (2)
  - Nephritic syndrome [Recovering/Resolving]
  - Glomerulonephritis rapidly progressive [Recovering/Resolving]

NARRATIVE: CASE EVENT DATE: 20230509
